FAERS Safety Report 17374201 (Version 1)
Quarter: 2020Q1

REPORT INFORMATION
  Report Type: Spontaneous
  Country: DE (occurrence: DE)
  Receive Date: 20200206
  Receipt Date: 20200206
  Transmission Date: 20200409
  Serious: Yes (Other)
  Sender: FDA-Public Use
  Company Number: DE-009507513-2002DEU000699

PATIENT
  Age: 59 Year
  Sex: Female

DRUGS (2)
  1. NASONEX [Suspect]
     Active Substance: MOMETASONE FUROATE
     Indication: SINUSITIS
     Dosage: UNK
     Dates: start: 201910
  2. NASONEX [Suspect]
     Active Substance: MOMETASONE FUROATE
     Dosage: UNK
     Dates: start: 201911, end: 202001

REACTIONS (3)
  - Dysphagia [Not Recovered/Not Resolved]
  - Dry mouth [Unknown]
  - Fungal oesophagitis [Unknown]

NARRATIVE: CASE EVENT DATE: 2020
